FAERS Safety Report 21492524 (Version 1)
Quarter: 2022Q4

REPORT INFORMATION
  Report Type: Spontaneous
  Country: US (occurrence: US)
  Receive Date: 20221021
  Receipt Date: 20221021
  Transmission Date: 20230113
  Serious: No
  Sender: FDA-Public Use
  Company Number: US-TAKEDA-2022TUS076495

PATIENT
  Sex: Female

DRUGS (4)
  1. GAMMAGARD LIQUID [Suspect]
     Active Substance: HUMAN IMMUNOGLOBULIN G
     Indication: Primary immunodeficiency syndrome
     Dosage: UNK, MONTHLY
     Route: 042
  2. ALBUTEROL [Concomitant]
     Active Substance: ALBUTEROL
     Route: 065
  3. PAXLOVID [Concomitant]
     Active Substance: NIRMATRELVIR\RITONAVIR
     Route: 065
  4. INSULIN NOS [Concomitant]
     Active Substance: INSULIN NOS
     Route: 065

REACTIONS (1)
  - COVID-19 [Unknown]
